FAERS Safety Report 9371357 (Version 3)
Quarter: 2013Q4

REPORT INFORMATION
  Report Type: Spontaneous
  Country: US (occurrence: US)
  Receive Date: 20130627
  Receipt Date: 20131009
  Transmission Date: 20140711
  Serious: No
  Sender: FDA-Public Use
  Company Number: US-BIOGENIDEC-2013BI057305

PATIENT
  Age: 31 Year
  Sex: Female

DRUGS (4)
  1. TYSABRI [Suspect]
     Indication: MULTIPLE SCLEROSIS
     Route: 042
     Dates: start: 20130306, end: 20130619
  2. RITALIN [Concomitant]
  3. BACLOFEN [Concomitant]
  4. AMLODIPINE [Concomitant]

REACTIONS (1)
  - Hypersensitivity [Recovered/Resolved]
